FAERS Safety Report 4611142-X (Version None)
Quarter: 2005Q1

REPORT INFORMATION
  Report Type: 
  Country: None (occurrence: None)
  Receive Date: 20050317
  Receipt Date: 20050307
  Transmission Date: 20050727
  Serious: Yes (Death)
  Sender: FDA-Public Use
  Company Number: US-JNJFOC-20050206530

PATIENT
  Age: 43 Year
  Sex: Male
  Weight: 92.99 kg

DRUGS (1)
  1. DURAGESIC-100 [Suspect]
     Indication: DRUG USE FOR UNKNOWN INDICATION
     Route: 062

REACTIONS (7)
  - ATHEROSCLEROSIS [None]
  - CARDIOMEGALY [None]
  - CONGESTIVE CARDIOMYOPATHY [None]
  - HEPATIC CONGESTION [None]
  - OVERDOSE [None]
  - PULMONARY CONGESTION [None]
  - SPLEEN CONGESTION [None]
